FAERS Safety Report 6038569-6 (Version None)
Quarter: 2009Q1

REPORT INFORMATION
  Report Type: 
  Country: None (occurrence: None)
  Receive Date: 20090115
  Receipt Date: 20090109
  Transmission Date: 20090719
  Serious: Yes (Hospitalization)
  Sender: FDA-Public Use
  Company Number: A0693032A

PATIENT
  Age: 38 Year
  Sex: Male
  Weight: 122.7 kg

DRUGS (8)
  1. AVANDIA [Suspect]
     Dosage: 8MG PER DAY
     Route: 048
     Dates: start: 20030101, end: 20051231
  2. REGULAR INSULIN [Concomitant]
     Dates: start: 20040101
  3. TRICOR [Concomitant]
  4. LIPITOR [Concomitant]
  5. XANAX [Concomitant]
  6. DILAUDID [Concomitant]
  7. AVALIDE [Concomitant]
  8. GLUCOPHAGE [Concomitant]

REACTIONS (3)
  - CARDIAC DISORDER [None]
  - CORONARY ARTERY DISEASE [None]
  - MYOCARDIAL INFARCTION [None]
